FAERS Safety Report 4602117-5 (Version None)
Quarter: 2005Q2

REPORT INFORMATION
  Report Type: 
  Country: None (occurrence: None)
  Receive Date: 20050215
  Receipt Date: 20040220
  Transmission Date: 20051028
  Serious: Yes (Life-Threatening, Hospitalization, Other)
  Sender: FDA-Public Use
  Company Number: MC200400078

PATIENT
  Age: 80 Year
  Sex: Female
  Weight: 48.5 kg

DRUGS (2)
  1. ANGIOMAX [Suspect]
     Indication: ANTICOAGULANT THERAPY
     Dosage: 7.5 ML, BOLUS, IV BOLUS; 18 ML/HR, HR INF, IV BOLUS
     Route: 040
     Dates: start: 20040220, end: 20040220
  2. ANGIOMAX [Suspect]
     Indication: CORONARY ANGIOPLASTY
     Dosage: 7.5 ML, BOLUS, IV BOLUS; 18 ML/HR, HR INF, IV BOLUS
     Route: 040
     Dates: start: 20040220, end: 20040220

REACTIONS (4)
  - BRADYCARDIA [None]
  - COAGULATION TIME ABNORMAL [None]
  - CORONARY ARTERY THROMBOSIS [None]
  - HYPOTENSION [None]
